FAERS Safety Report 12744321 (Version 1)
Quarter: 2016Q3

REPORT INFORMATION
  Report Type: Other
  Country: GB (occurrence: IL)
  Receive Date: 20160914
  Receipt Date: 20160914
  Transmission Date: 20161109
  Serious: Yes (Death)
  Sender: FDA-Public Use
  Company Number: IL-INTERNATIONAL MEDICATION SYSTEMS, LIMITED-1057334

PATIENT
  Age: 65 Year
  Sex: Male

DRUGS (5)
  1. AMIODARONE [Suspect]
     Active Substance: AMIODARONE
     Route: 042
  2. AMIODARONE [Interacting]
     Active Substance: AMIODARONE
  3. IBRUTINIB [Interacting]
     Active Substance: IBRUTINIB
  4. APIXABAN [Concomitant]
     Active Substance: APIXABAN
  5. METHYLPREDNISOLONE. [Concomitant]
     Active Substance: METHYLPREDNISOLONE

REACTIONS (4)
  - Dyspnoea [None]
  - Cardiac failure congestive [None]
  - Death [None]
  - Drug interaction [None]
